FAERS Safety Report 4420350-2 (Version None)
Quarter: 2004Q3

REPORT INFORMATION
  Report Type: 
  Country: None (occurrence: None)
  Receive Date: 20040809
  Receipt Date: 20040405
  Transmission Date: 20050211
  Serious: Yes (Other)
  Sender: FDA-Public Use
  Company Number: US-GLAXOSMITHKLINE-A0506104A

PATIENT
  Age: 49 Year
  Sex: Male

DRUGS (4)
  1. PAXIL [Suspect]
     Indication: ANXIETY DISORDER
     Dosage: 20MG PER DAY
     Route: 048
     Dates: start: 20030601, end: 20031201
  2. INSULIN [Concomitant]
  3. LIPITOR [Concomitant]
  4. MULTI-VITAMIN [Concomitant]

REACTIONS (1)
  - HYPOGLYCAEMIA [None]
